FAERS Safety Report 7754304-5 (Version None)
Quarter: 2011Q3

REPORT INFORMATION
  Report Type: 
  Country: None (occurrence: None)
  Receive Date: 20110915
  Receipt Date: 20110908
  Transmission Date: 20111222
  Serious: Yes (Hospitalization)
  Sender: FDA-Public Use
  Company Number: US-AMGEN-USACT2011029201

PATIENT
  Age: 45 Year
  Sex: Female
  Weight: 83.4 kg

DRUGS (14)
  1. LEVAQUIN [Concomitant]
  2. PROZAC [Concomitant]
  3. PLAQUENIL [Concomitant]
  4. OXYCONTIN [Concomitant]
     Dosage: UNK UNK, BID
  5. OXYCODONE HCL [Concomitant]
  6. TACROLIMUS [Concomitant]
  7. MICOFENOLATO MOFETIL G [Concomitant]
     Dosage: UNK
     Dates: end: 20110527
  8. ETANERCEPT [Suspect]
     Indication: GRAFT VERSUS HOST DISEASE
     Dosage: 25 MG, 2 TIMES/WK
     Route: 058
     Dates: start: 20110426
  9. IBUPROFEN [Concomitant]
  10. CLONAZEPAM [Concomitant]
     Dosage: UNK UNK, PRN
  11. COMPAZINE [Concomitant]
  12. NICOTINE [Concomitant]
     Dosage: 4 MG, PRN
  13. LITHIUM [Concomitant]
     Dosage: 300 MG, BID
  14. ZOFRAN [Concomitant]
     Dosage: UNK UNK, Q8H

REACTIONS (2)
  - MENTAL STATUS CHANGES [None]
  - HYPOTENSION [None]
